FAERS Safety Report 18360066 (Version 1)
Quarter: 2020Q4

REPORT INFORMATION
  Report Type: Report from Study
  Country: MX (occurrence: MX)
  Receive Date: 20201008
  Receipt Date: 20201008
  Transmission Date: 20210114
  Serious: Yes (Other)
  Sender: FDA-Public Use
  Company Number: PHHY2019MX059147

PATIENT
  Sex: Male

DRUGS (1)
  1. ENTRESTO [Suspect]
     Active Substance: SACUBITRIL\VALSARTAN
     Indication: PRODUCT USED FOR UNKNOWN INDICATION
     Dosage: 1 DF, BID
     Route: 048

REACTIONS (15)
  - Memory impairment [Unknown]
  - Fall [Unknown]
  - Joint injury [Unknown]
  - Nervousness [Unknown]
  - Sensory disturbance [Unknown]
  - Mental disorder [Unknown]
  - Drug intolerance [Unknown]
  - Food intolerance [Unknown]
  - Insomnia [Unknown]
  - Balance disorder [Unknown]
  - Gait disturbance [Unknown]
  - Hypoacusis [Unknown]
  - Deafness [Unknown]
  - Cardiomegaly [Unknown]
  - Disturbance in attention [Unknown]
